FAERS Safety Report 8294488-6 (Version None)
Quarter: 2012Q2

REPORT INFORMATION
  Report Type: 
  Country: None (occurrence: None)
  Receive Date: 20120418
  Receipt Date: 20120412
  Transmission Date: 20120825
  Serious: Yes (Other)
  Sender: FDA-Public Use
  Company Number: US-BAYER-2012-035977

PATIENT
  Age: 36 Year
  Sex: Female

DRUGS (1)
  1. MIRENA [Suspect]
     Dosage: UNK
     Dates: start: 20090615, end: 20100623

REACTIONS (10)
  - PELVIC PAIN [None]
  - VAGINAL DISCHARGE [None]
  - QUALITY OF LIFE DECREASED [None]
  - DISCOMFORT [None]
  - HAEMORRHAGE [None]
  - INJURY [None]
  - BACK PAIN [None]
  - ANHEDONIA [None]
  - UTERINE PERFORATION [None]
  - EMOTIONAL DISTRESS [None]
